FAERS Safety Report 16624623 (Version 1)
Quarter: 2019Q3

REPORT INFORMATION
  Report Type: Spontaneous
  Country: US (occurrence: US)
  Receive Date: 20190611
  Receipt Date: 20190611
  Transmission Date: 20191004
  Serious: Yes (Hospitalization)
  Sender: FDA-Public Use
  Company Number: None

PATIENT
  Age: 77 Year
  Sex: Male

DRUGS (1)
  1. TEMOZOLOMIDE 250MG CAP [Suspect]
     Active Substance: TEMOZOLOMIDE
     Indication: BRAIN NEOPLASM MALIGNANT
     Route: 048
     Dates: start: 20190418

REACTIONS (4)
  - Pulmonary embolism [None]
  - Thrombosis [None]
  - Myocardial infarction [None]
  - Oncologic complication [None]

NARRATIVE: CASE EVENT DATE: 20190525
